FAERS Safety Report 5285233-7 (Version None)
Quarter: 2007Q1

REPORT INFORMATION
  Report Type: 
  Country: None (occurrence: None)
  Receive Date: 20061229
  Receipt Date: 20060829
  Transmission Date: 20070707
  Serious: Yes (Other)
  Sender: FDA-Public Use
  Company Number: 2006UW17178

PATIENT
  Age: 63 Year
  Sex: Female

DRUGS (6)
  1. CRESTOR [Suspect]
     Dosage: 10 MG PO
     Route: 048
     Dates: start: 20060823
  2. POTASSIUM ACETATE [Concomitant]
  3. CALCIUM [Concomitant]
  4. ATENOLOL [Concomitant]
  5. NEXIUM ORAL [Concomitant]
  6. HYDROCHLOROTHIAZIDE [Concomitant]

REACTIONS (2)
  - FEELING ABNORMAL [None]
  - PAIN IN EXTREMITY [None]
